FAERS Safety Report 6597704-1 (Version None)
Quarter: 2010Q1

REPORT INFORMATION
  Report Type: 
  Country: None (occurrence: None)
  Receive Date: 20100223
  Receipt Date: 20100213
  Transmission Date: 20100710
  Serious: Yes (Hospitalization, Other)
  Sender: FDA-Public Use
  Company Number: US-ABBOTT-10P-163-0626069-00

PATIENT
  Sex: Female
  Weight: 74.91 kg

DRUGS (1)
  1. SYNTHROID [Suspect]
     Indication: HYPOTHYROIDISM
     Dates: start: 20010101

REACTIONS (6)
  - ADVERSE EVENT [None]
  - BREATH SOUNDS ABNORMAL [None]
  - HAEMOPTYSIS [None]
  - LUNG NEOPLASM [None]
  - LUNG NEOPLASM MALIGNANT [None]
  - PALPITATIONS [None]
